FAERS Safety Report 5968861-2 (Version None)
Quarter: 2008Q4

REPORT INFORMATION
  Report Type: 
  Country: None (occurrence: None)
  Receive Date: 20081125
  Receipt Date: 20081125
  Transmission Date: 20090506
  Serious: Yes (Life-Threatening)
  Sender: FDA-Public Use
  Company Number: None

PATIENT
  Age: 43 Year
  Sex: Female
  Weight: 112.0385 kg

DRUGS (1)
  1. KEPPRA [Suspect]
     Indication: MIGRAINE

REACTIONS (4)
  - DEPRESSION [None]
  - FEAR [None]
  - MAJOR DEPRESSION [None]
  - SUICIDAL IDEATION [None]
